FAERS Safety Report 7424664-3 (Version None)
Quarter: 2011Q2

REPORT INFORMATION
  Report Type: 
  Country: None (occurrence: None)
  Receive Date: 20110419
  Receipt Date: 20110403
  Transmission Date: 20111010
  Serious: Yes (Hospitalization, Other)
  Sender: FDA-Public Use
  Company Number: US-BAYER-200943717NA

PATIENT
  Age: 18 Year
  Sex: Female
  Weight: 82.54 kg

DRUGS (10)
  1. CIPROFLOXACIN HCL [Concomitant]
     Dosage: 500 MG, BID
  2. NORCO [Concomitant]
     Dosage: UNK
     Dates: start: 20080104
  3. YAZ [Suspect]
     Indication: CONTRACEPTION
     Dosage: UNK UNK, QD
     Route: 048
     Dates: start: 20070501, end: 20080101
  4. ATIVAN [Concomitant]
     Dosage: UNK
     Dates: start: 20080104
  5. FLEXERIL [Concomitant]
     Dosage: UNK
     Dates: start: 20080104
  6. MOTRIN [Concomitant]
  7. ASPIRIN [Concomitant]
  8. ADVIL COLD AND SINUS [Concomitant]
  9. REGLAN [Concomitant]
     Dosage: UNK
     Dates: start: 20080104
  10. YAZ [Suspect]
     Route: 048

REACTIONS (4)
  - CEREBROVASCULAR ACCIDENT [None]
  - SUPERIOR SAGITTAL SINUS THROMBOSIS [None]
  - OSTEOCHONDROSIS [None]
  - THROMBOSIS [None]
